FAERS Safety Report 7363680 (Version 3)
Quarter: 2013Q3

REPORT INFORMATION
  Report Type: Report from Study
  Country: US (occurrence: US)
  Receive Date: 20100422
  Receipt Date: 20130717
  Transmission Date: 20140515
  Serious: Yes (Disabling, Other)
  Sender: FDA-Public Use
  Company Number: US-ABBOTT-10P-163-0638034-00

PATIENT
  Age: 47 Year
  Sex: Female
  Weight: 74.91 kg

DRUGS (6)
  1. HUMIRA [Suspect]
     Indication: RHEUMATOID ARTHRITIS
     Route: 058
     Dates: start: 2007, end: 201305
  2. HUMIRA [Suspect]
     Indication: PSORIATIC ARTHROPATHY
     Route: 058
     Dates: start: 201307
  3. PREMARIN [Concomitant]
     Indication: MENOPAUSE
     Dates: start: 2000
  4. ESTRADIOL [Concomitant]
     Indication: HORMONE REPLACEMENT THERAPY
  5. OXYBUTYNIN [Concomitant]
     Indication: BLADDER DISORDER
  6. MULTIVITAMIN [Concomitant]
     Indication: VITAMIN SUPPLEMENTATION

REACTIONS (28)
  - Medical device complication [Recovered/Resolved]
  - Road traffic accident [Recovered/Resolved]
  - Head injury [Recovering/Resolving]
  - Intervertebral disc injury [Recovered/Resolved]
  - Hypoacusis [Recovering/Resolving]
  - Postoperative wound infection [Recovered/Resolved]
  - Hyperacusis [Not Recovered/Not Resolved]
  - Ear injury [Recovering/Resolving]
  - Weight decreased [Not Recovered/Not Resolved]
  - Trismus [Recovering/Resolving]
  - Ligament sprain [Recovered/Resolved]
  - Joint crepitation [Recovered/Resolved]
  - Paranoia [Not Recovered/Not Resolved]
  - Procedural pain [Not Recovered/Not Resolved]
  - Pain in extremity [Recovered/Resolved]
  - Osteoarthritis [Recovered/Resolved]
  - Osteoarthritis [Recovered/Resolved]
  - Foot deformity [Recovered/Resolved]
  - Calcinosis [Recovered/Resolved]
  - Jaw fracture [Recovered/Resolved]
  - Limb crushing injury [Recovered/Resolved]
  - Osteosclerosis [Recovered/Resolved]
  - Exostosis [Recovered/Resolved]
  - Foot deformity [Recovered/Resolved]
  - Injection site pain [Not Recovered/Not Resolved]
  - Injection site bruising [Not Recovered/Not Resolved]
  - Arthralgia [Recovered/Resolved]
  - Headache [Recovered/Resolved]
